FAERS Safety Report 23497815 (Version 1)
Quarter: 2024Q1

REPORT INFORMATION
  Report Type: Spontaneous
  Country: US (occurrence: None)
  Receive Date: 20240207
  Receipt Date: 20240207
  Transmission Date: 20240409
  Serious: No
  Sender: FDA-Public Use
  Company Number: US-ROCHE-3383669

PATIENT
  Sex: Female

DRUGS (8)
  1. XOLAIR [Suspect]
     Active Substance: OMALIZUMAB
     Indication: Urticaria
     Dosage: FOUR 150MG PRE-FILLED SYRINGES ADMINISTERED IN HCP OFFICE ;ONGOING: YES, 150MG PRE-FILLED SYRINGE
     Route: 058
  2. XOLAIR [Suspect]
     Active Substance: OMALIZUMAB
  3. XOLAIR [Suspect]
     Active Substance: OMALIZUMAB
  4. NORETHINDRONE [Concomitant]
     Active Substance: NORETHINDRONE
  5. OLOPATADINE [Concomitant]
     Active Substance: OLOPATADINE
     Dosage: ONGOING
     Route: 045
  6. ATROVENT [Concomitant]
     Active Substance: IPRATROPIUM BROMIDE
     Route: 045
  7. AZELASTINE [Concomitant]
     Active Substance: AZELASTINE\AZELASTINE HYDROCHLORIDE
     Route: 045
  8. FLUTICASONE [Concomitant]
     Active Substance: FLUTICASONE
     Route: 045

REACTIONS (3)
  - Expired product administered [Unknown]
  - Off label use [Unknown]
  - No adverse event [Unknown]

NARRATIVE: CASE EVENT DATE: 20230705
